FAERS Safety Report 4784182-8 (Version None)
Quarter: 2005Q3

REPORT INFORMATION
  Report Type: 
  Country: None (occurrence: None)
  Receive Date: 20050930
  Receipt Date: 20050829
  Transmission Date: 20060218
  Serious: No
  Sender: FDA-Public Use
  Company Number: US-GLAXOSMITHKLINE-A0572235A

PATIENT
  Age: 78 Year
  Sex: Female

DRUGS (10)
  1. FLOVENT [Suspect]
     Indication: ASTHMA
     Dosage: 2PUFF TWICE PER DAY
     Route: 055
     Dates: start: 20050119, end: 20050815
  2. ALLEGRA [Concomitant]
  3. SINGULAIR [Concomitant]
  4. COZAAR [Concomitant]
  5. PREVACID [Concomitant]
  6. ZOCOR [Concomitant]
  7. IMDUR [Concomitant]
  8. NEURONTIN [Concomitant]
  9. ASPIRIN [Concomitant]
  10. TYLENOL ARTHRITIS [Concomitant]

REACTIONS (8)
  - CHEST PAIN [None]
  - CHOKING SENSATION [None]
  - DRY MOUTH [None]
  - DYSPHAGIA [None]
  - HEADACHE [None]
  - INSOMNIA [None]
  - NAUSEA [None]
  - THROAT IRRITATION [None]
